FAERS Safety Report 17573432 (Version 1)
Quarter: 2020Q1

REPORT INFORMATION
  Report Type: Spontaneous
  Country: CA (occurrence: CA)
  Receive Date: 20200323
  Receipt Date: 20200323
  Transmission Date: 20200409
  Serious: Yes (Other)
  Sender: FDA-Public Use
  Company Number: CA-PURDUE PHARMA-CAN-2020-0010752

PATIENT
  Age: 24 Year
  Sex: Female
  Weight: 58 kg

DRUGS (34)
  1. ACTONEL [Concomitant]
     Active Substance: RISEDRONATE SODIUM
  2. GRAVOL [Concomitant]
     Active Substance: DIMENHYDRINATE
  3. PREMARIN [Concomitant]
     Active Substance: ESTROGENS, CONJUGATED
  4. TACROLIMUS. [Concomitant]
     Active Substance: TACROLIMUS
  5. TOBRADEX [Concomitant]
     Active Substance: DEXAMETHASONE\TOBRAMYCIN
  6. BACLOFEN. [Concomitant]
     Active Substance: BACLOFEN
  7. BENADRYL [Concomitant]
     Active Substance: DIPHENHYDRAMINE HYDROCHLORIDE
  8. FLUCONAZOLE. [Concomitant]
     Active Substance: FLUCONAZOLE
  9. GABAPENTIN. [Concomitant]
     Active Substance: GABAPENTIN
  10. VITAMIN E                          /00110501/ [Concomitant]
     Active Substance: TOCOPHEROL
  11. RITUXAN [Suspect]
     Active Substance: RITUXIMAB
     Indication: ACUTE LYMPHOCYTIC LEUKAEMIA
     Dosage: 4 DF, WEEKLY
     Route: 042
  12. FLUOROMETHOLONE. [Concomitant]
     Active Substance: FLUOROMETHOLONE
  13. NAPROXEN. [Concomitant]
     Active Substance: NAPROXEN
  14. ZOPICLONE [Concomitant]
     Active Substance: ZOPICLONE
  15. AMITRIPTYLINE [Concomitant]
     Active Substance: AMITRIPTYLINE
  16. BETADERM [Concomitant]
     Active Substance: BETAMETHASONE VALERATE
  17. PANTOLOC                           /01263204/ [Concomitant]
     Active Substance: PANTOPRAZOLE SODIUM
  18. RITUXAN [Suspect]
     Active Substance: RITUXIMAB
     Indication: GRAFT VERSUS HOST DISEASE
     Dosage: UNK
     Route: 042
  19. AZITHROMYCIN ANHYDROUS. [Concomitant]
     Active Substance: AZITHROMYCIN ANHYDROUS
  20. LYRICA [Concomitant]
     Active Substance: PREGABALIN
  21. VITAMIN B6 [Concomitant]
     Active Substance: PYRIDOXINE HYDROCHLORIDE
  22. PARACETAMOL W/TRAMADOL HYDROCHLORIDE [Concomitant]
     Active Substance: ACETAMINOPHEN\TRAMADOL HYDROCHLORIDE
  23. ACYCLOVIR                          /00587301/ [Concomitant]
     Active Substance: ACYCLOVIR
  24. DESOXIMETASONE. [Concomitant]
     Active Substance: DESOXIMETASONE
  25. IMMUNOGLOBULIN G HUMAN [Concomitant]
     Active Substance: HUMAN IMMUNOGLOBULIN G
  26. METHOXSALEN. [Concomitant]
     Active Substance: METHOXSALEN
  27. SALBUTAMOL [Concomitant]
     Active Substance: ALBUTEROL
  28. STATEX                             /00848101/ [Concomitant]
  29. HYDROMORPHONE HYDROCHLORIDE. [Suspect]
     Active Substance: HYDROMORPHONE HYDROCHLORIDE
     Indication: PRODUCT USED FOR UNKNOWN INDICATION
     Dosage: UNK
     Route: 065
  30. CYANOCOBALAMIN. [Concomitant]
     Active Substance: CYANOCOBALAMIN
  31. PREDNISONE. [Concomitant]
     Active Substance: PREDNISONE
  32. DIPHENHYDRAMINE HYDROCHLORIDE. [Concomitant]
     Active Substance: DIPHENHYDRAMINE HYDROCHLORIDE
  33. FOLIC ACID. [Concomitant]
     Active Substance: FOLIC ACID
  34. PENTAMIDINE [Concomitant]
     Active Substance: PENTAMIDINE

REACTIONS (5)
  - Dysphagia [Unknown]
  - Off label use [Unknown]
  - Vomiting [Unknown]
  - Cardiac failure [Unknown]
  - Drug intolerance [Unknown]
